FAERS Safety Report 9371108 (Version 1)
Quarter: 2013Q2

REPORT INFORMATION
  Report Type: Spontaneous
  Country: US (occurrence: None)
  Receive Date: 20130626
  Receipt Date: 20130626
  Transmission Date: 20140414
  Serious: Yes (Other)
  Sender: FDA-Public Use
  Company Number: None

PATIENT
  Age: 59 Year
  Sex: Female
  Weight: 103.42 kg

DRUGS (8)
  1. AUBAGIO [Suspect]
     Indication: MULTIPLE SCLEROSIS
     Route: 048
     Dates: start: 20130320, end: 20130522
  2. CARVEDILOL [Concomitant]
  3. CHOLESTYRAMINE [Concomitant]
  4. LIDOCAINE [Concomitant]
  5. MIRAPEX [Concomitant]
  6. NUVIGIL [Concomitant]
  7. SYNTHROID [Concomitant]
  8. RANIDINE [Concomitant]

REACTIONS (2)
  - Neuropathy peripheral [None]
  - Carpal tunnel syndrome [None]
